FAERS Safety Report 14598782 (Version 1)
Quarter: 2018Q1

REPORT INFORMATION
  Report Type: Spontaneous
  Country: GB (occurrence: GB)
  Receive Date: 20180305
  Receipt Date: 20180305
  Transmission Date: 20180509
  Serious: Yes (Life-Threatening, Hospitalization, Other)
  Sender: FDA-Public Use
  Company Number: GB-WEST-WARD PHARMACEUTICALS CORP.-GB-H14001-18-01530

PATIENT
  Age: 51 Year
  Sex: Female
  Weight: 70 kg

DRUGS (1)
  1. ATRACURIUM [Suspect]
     Active Substance: ATRACURIUM
     Indication: ANAESTHESIA
     Route: 042

REACTIONS (2)
  - Pulseless electrical activity [Unknown]
  - Anaphylactic reaction [Recovered/Resolved]

NARRATIVE: CASE EVENT DATE: 20170609
